FAERS Safety Report 6809322-8 (Version None)
Quarter: 2010Q2

REPORT INFORMATION
  Report Type: 
  Country: None (occurrence: None)
  Receive Date: 20100616
  Receipt Date: 20100616
  Transmission Date: 20101027
  Serious: Yes (Other)
  Sender: FDA-Public Use
  Company Number: 2010AL003635

PATIENT
  Age: 40 Year
  Sex: Female

DRUGS (4)
  1. FEVERALL [Suspect]
     Indication: TOOTHACHE
     Dosage: 2 DF QID;PO
     Route: 048
     Dates: start: 20100510, end: 20100511
  2. CODEINE SULFATE [Concomitant]
  3. PRIADEL [Concomitant]
  4. DEPAKOTE [Concomitant]

REACTIONS (3)
  - DIZZINESS [None]
  - NAUSEA [None]
  - VOMITING [None]
